FAERS Safety Report 21247767 (Version 1)
Quarter: 2022Q3

REPORT INFORMATION
  Report Type: Spontaneous
  Country: US (occurrence: None)
  Receive Date: 20220824
  Receipt Date: 20220824
  Transmission Date: 20221027
  Serious: No
  Sender: FDA-Public Use
  Company Number: US-Emmaus Medical, Inc.-EMM202207-000122

PATIENT
  Age: 29 Year
  Sex: Male
  Weight: 81.647 kg

DRUGS (1)
  1. ENDARI [Suspect]
     Active Substance: GLUTAMINE
     Indication: Sickle cell disease
     Dosage: 15 G
     Dates: start: 20220601

REACTIONS (2)
  - Chromaturia [Not Recovered/Not Resolved]
  - Product dose omission issue [Unknown]
